FAERS Safety Report 6126499-0 (Version None)
Quarter: 2009Q1

REPORT INFORMATION
  Report Type: 
  Country: None (occurrence: None)
  Receive Date: 20090320
  Receipt Date: 20090309
  Transmission Date: 20090719
  Serious: Yes (Other)
  Sender: FDA-Public Use
  Company Number: AU-PFIZER INC-2009180987

PATIENT

DRUGS (3)
  1. DALACIN [Suspect]
     Indication: CELLULITIS
  2. DALACIN [Suspect]
     Dosage: FREQUENCY: TDS,
     Route: 048
  3. DALACIN [Suspect]
     Dosage: 150 MG, 2X/DAY
     Route: 048

REACTIONS (8)
  - ABDOMINAL PAIN [None]
  - ABNORMAL FAECES [None]
  - BURNING SENSATION [None]
  - DYSPNOEA [None]
  - FEELING HOT [None]
  - LOSS OF CONSCIOUSNESS [None]
  - MOVEMENT DISORDER [None]
  - THROAT IRRITATION [None]
